APPROVED DRUG PRODUCT: PHYTONADIONE
Active Ingredient: PHYTONADIONE
Strength: 1MG/0.5ML
Dosage Form/Route: INJECTABLE;INJECTION
Application: A214966 | Product #001 | TE Code: AB
Applicant: CIPLA LTD
Approved: Jan 3, 2025 | RLD: No | RS: No | Type: RX